FAERS Safety Report 5023849-3 (Version None)
Quarter: 2006Q2

REPORT INFORMATION
  Report Type: 
  Country: None (occurrence: None)
  Receive Date: 20060606
  Receipt Date: 20060524
  Transmission Date: 20061013
  Serious: Yes (Hospitalization, Other)
  Sender: FDA-Public Use
  Company Number: US200512001058

PATIENT
  Age: 13 Year
  Sex: Male
  Weight: 51 kg

DRUGS (2)
  1. STRATTERA [Suspect]
     Indication: ATTENTION DEFICIT/HYPERACTIVITY DISORDER
     Dosage: 60 MG DAILY (1/D)
     Dates: start: 20030930, end: 20050908
  2. LEXAPRO [Concomitant]

REACTIONS (4)
  - BIPOLAR DISORDER [None]
  - INJURY ASPHYXIATION [None]
  - SUICIDAL IDEATION [None]
  - SUICIDE ATTEMPT [None]
